FAERS Safety Report 15425791 (Version 2)
Quarter: 2018Q4

REPORT INFORMATION
  Report Type: Spontaneous
  Country: US (occurrence: US)
  Receive Date: 20180925
  Receipt Date: 20181022
  Transmission Date: 20190204
  Serious: Yes (Hospitalization, Other)
  Sender: FDA-Public Use
  Company Number: US-PFIZER INC-2018381717

PATIENT
  Age: 51 Year
  Sex: Female
  Weight: 68.95 kg

DRUGS (6)
  1. XGEVA [Suspect]
     Active Substance: DENOSUMAB
     Indication: FRACTURE
     Dosage: INJECTION UNDER THE SKIN ONCE A MONTH
     Route: 058
  2. CALCIUM WITH VITAMIN D [Concomitant]
     Active Substance: CALCIUM\VITAMIN D
     Dosage: 600 MG, UNK
  3. IBRANCE [Suspect]
     Active Substance: PALBOCICLIB
     Indication: BREAST CANCER METASTATIC
     Dosage: 125 MG, CYCLIC (ONCE A DAY, FOR 21 DAYS ON AND 7 DAYS OFF)
     Dates: start: 201707
  4. IBRANCE [Suspect]
     Active Substance: PALBOCICLIB
     Indication: BONE CANCER METASTATIC
  5. VITAMIN B12 [Concomitant]
     Active Substance: CYANOCOBALAMIN
     Indication: NEUROPATHY PERIPHERAL
     Dosage: UNK
  6. LETROZOLE. [Concomitant]
     Active Substance: LETROZOLE
     Indication: HORMONE REPLACEMENT THERAPY
     Dosage: EVERYDAY 2.5

REACTIONS (18)
  - Fall [Unknown]
  - Balance disorder [Unknown]
  - Joint noise [Unknown]
  - Visual impairment [Unknown]
  - Joint injury [Unknown]
  - General physical health deterioration [Not Recovered/Not Resolved]
  - Osteoarthritis [Not Recovered/Not Resolved]
  - Vitamin D decreased [Unknown]
  - Anxiety [Unknown]
  - Discomfort [Unknown]
  - Gait disturbance [Not Recovered/Not Resolved]
  - White blood cell count decreased [Recovering/Resolving]
  - Neoplasm progression [Unknown]
  - Pain [Unknown]
  - Feeling abnormal [Unknown]
  - Depression [Unknown]
  - Arthralgia [Unknown]
  - Dyspnoea [Unknown]

NARRATIVE: CASE EVENT DATE: 20180928
